FAERS Safety Report 12234619 (Version 1)
Quarter: 2016Q2

REPORT INFORMATION
  Report Type: Spontaneous
  Country: US (occurrence: None)
  Receive Date: 20160401
  Receipt Date: 20160401
  Transmission Date: 20160815
  Serious: Yes (Hospitalization)
  Sender: FDA-Public Use
  Company Number: None

PATIENT
  Age: 58 Year
  Sex: Male
  Weight: 87.3 kg

DRUGS (1)
  1. VANCOMYCIN [Suspect]
     Active Substance: VANCOMYCIN
     Dosage: 1750 MG OTHER IV
     Route: 042
     Dates: start: 20160125, end: 20160207

REACTIONS (3)
  - Toxicity to various agents [None]
  - Acute kidney injury [None]
  - Pyrexia [None]

NARRATIVE: CASE EVENT DATE: 20160207
